FAERS Safety Report 6790295-1 (Version None)
Quarter: 2010Q2

REPORT INFORMATION
  Report Type: 
  Country: None (occurrence: None)
  Receive Date: 20100624
  Receipt Date: 20100616
  Transmission Date: 20101027
  Serious: Yes (Other)
  Sender: FDA-Public Use
  Company Number: JP-PFIZER INC-2010075242

PATIENT
  Age: 67 Year
  Sex: Female

DRUGS (3)
  1. LIPITOR [Suspect]
     Indication: DYSLIPIDAEMIA
     Dosage: 5 MG, UNKNOWN/D
     Route: 048
     Dates: start: 20091204
  2. LIPITOR [Suspect]
     Dosage: UNK
     Route: 048
  3. CHLORELLA SUPPLEMENT [Concomitant]
     Route: 048

REACTIONS (2)
  - FAECES DISCOLOURED [None]
  - PRURITUS [None]
